FAERS Safety Report 11213243 (Version 2)
Quarter: 2015Q4

REPORT INFORMATION
  Report Type: Spontaneous
  Country: FR (occurrence: FR)
  Receive Date: 20150623
  Receipt Date: 20151014
  Transmission Date: 20160304
  Serious: Yes (Other)
  Sender: FDA-Public Use
  Company Number: FR-GLAXOSMITHKLINE-FR2015GSK087984

PATIENT
  Age: 57 Year
  Sex: Male

DRUGS (3)
  1. CLAVENTIN [Suspect]
     Active Substance: CLAVULANATE POTASSIUM\TICARCILLIN DISODIUM
     Indication: STENOTROPHOMONAS INFECTION
  2. CLAVENTIN [Suspect]
     Active Substance: CLAVULANATE POTASSIUM\TICARCILLIN DISODIUM
     Indication: LUNG DISORDER
     Dosage: 5 G, TID
     Route: 042
     Dates: start: 20150620, end: 20150621
  3. COLIMYCINE [Concomitant]
     Active Substance: COLISTIMETHATE SODIUM

REACTIONS (2)
  - Toxic encephalopathy [Unknown]
  - Seizure [Unknown]

NARRATIVE: CASE EVENT DATE: 201506
